FAERS Safety Report 26170786 (Version 1)
Quarter: 2025Q4

REPORT INFORMATION
  Report Type: Spontaneous
  Country: US (occurrence: US)
  Receive Date: 20251217
  Receipt Date: 20251217
  Transmission Date: 20260118
  Serious: Yes (Life-Threatening, Other)
  Sender: AMGEN
  Company Number: US-AMGEN-USASP2025245501

PATIENT

DRUGS (1)
  1. BEVACIZUMAB [Suspect]
     Active Substance: BEVACIZUMAB
     Indication: Glioblastoma
     Dosage: UNK
     Route: 065

REACTIONS (8)
  - Pancreatitis [Unknown]
  - Palmar-plantar erythrodysaesthesia syndrome [Unknown]
  - Embolism [Unknown]
  - Muscular weakness [Unknown]
  - Fatigue [Unknown]
  - Glioblastoma [Unknown]
  - Asthenia [Unknown]
  - Drug ineffective [Unknown]
